FAERS Safety Report 6757883-X (Version None)
Quarter: 2010Q2

REPORT INFORMATION
  Report Type: 
  Country: None (occurrence: None)
  Receive Date: 20100604
  Receipt Date: 20100604
  Transmission Date: 20101027
  Serious: Yes (Other)
  Sender: FDA-Public Use
  Company Number: None

PATIENT
  Sex: Female
  Weight: 99.7913 kg

DRUGS (4)
  1. CELEBREX [Suspect]
     Indication: ARTHRITIS
     Dosage: 200MG 1X PO
     Route: 048
     Dates: start: 20080315, end: 20100305
  2. LAMACTIL [Concomitant]
  3. LEXAPRO [Concomitant]
  4. MIDRIN [Concomitant]

REACTIONS (1)
  - RENAL FAILURE CHRONIC [None]
